FAERS Safety Report 7787266-5 (Version None)
Quarter: 2011Q3

REPORT INFORMATION
  Report Type: 
  Country: None (occurrence: None)
  Receive Date: 20110929
  Receipt Date: 20110919
  Transmission Date: 20111222
  Serious: Yes (Hospitalization)
  Sender: FDA-Public Use
  Company Number: GB-JNJFOC-20110908179

PATIENT
  Age: 56 Year
  Sex: Female
  Weight: 72 kg

DRUGS (7)
  1. GOLIMUMAB [Suspect]
     Indication: RHEUMATOID ARTHRITIS
     Route: 058
     Dates: start: 20100915
  2. FOLIC ACID [Concomitant]
     Route: 048
     Dates: start: 20110330
  3. PAROXETINE HCL [Concomitant]
     Route: 048
     Dates: start: 20080101
  4. METHOTREXATE [Concomitant]
     Indication: RHEUMATOID ARTHRITIS
     Route: 058
     Dates: start: 20100330
  5. OMEPRAZOLE [Concomitant]
     Route: 048
     Dates: start: 20080101
  6. CO-DYDRAMOL [Concomitant]
     Dosage: UP TO 8/DAY
     Route: 048
     Dates: start: 20060101
  7. ATENOLOL [Concomitant]
     Route: 048
     Dates: start: 20060101

REACTIONS (2)
  - COSTOCHONDRITIS [None]
  - RESPIRATORY TRACT INFECTION [None]
